FAERS Safety Report 4720928-2 (Version None)
Quarter: 2005Q3

REPORT INFORMATION
  Report Type: 
  Country: None (occurrence: None)
  Receive Date: 20050720
  Receipt Date: 20050707
  Transmission Date: 20060218
  Serious: Yes (Life-Threatening, Hospitalization, Other)
  Sender: FDA-Public Use
  Company Number: 2005100168

PATIENT
  Age: 72 Year
  Sex: Male

DRUGS (2)
  1. PIROXICAM [Suspect]
     Indication: MYALGIA
     Dosage: 20 MG (20 MG, 1 IN 1 D), ORAL
     Route: 048
     Dates: start: 20050423, end: 20050514
  2. HIDROXIKL B12 B6 B1 (HYDROXOCOBALAMIN, PYRIDOXINE HYDROCHLORIDE, THIAM [Concomitant]

REACTIONS (4)
  - DUODENAL ULCER [None]
  - GASTRIC ULCER [None]
  - GASTRITIS [None]
  - MELAENA [None]
